FAERS Safety Report 21369638 (Version 1)
Quarter: 2022Q3

REPORT INFORMATION
  Report Type: Spontaneous
  Country: US (occurrence: None)
  Receive Date: 20220922
  Receipt Date: 20220922
  Transmission Date: 20221027
  Serious: Yes (Hospitalization)
  Sender: FDA-Public Use
  Company Number: None

PATIENT
  Age: 58 Year
  Sex: Male
  Weight: 98.1 kg

DRUGS (1)
  1. IBRUTINIB [Suspect]
     Active Substance: IBRUTINIB
     Indication: Mantle cell lymphoma
     Dosage: 560 MG DAILY ORAL?
     Route: 048
     Dates: start: 20211001

REACTIONS (2)
  - Atrial fibrillation [None]
  - Cardiac failure [None]

NARRATIVE: CASE EVENT DATE: 20220922
